FAERS Safety Report 8376038-9 (Version None)
Quarter: 2012Q2

REPORT INFORMATION
  Report Type: 
  Country: None (occurrence: None)
  Receive Date: 20120522
  Receipt Date: 20120516
  Transmission Date: 20120825
  Serious: Yes (Hospitalization)
  Sender: FDA-Public Use
  Company Number: PHHO2011DE02689

PATIENT
  Sex: Male
  Weight: 88.7 kg

DRUGS (6)
  1. RAMIPRIL [Concomitant]
     Indication: CARDIAC DISORDER
  2. TASIGNA [Suspect]
     Indication: CHRONIC MYELOID LEUKAEMIA
     Dosage: 600 MG, UNK
     Route: 048
     Dates: start: 20101209, end: 20110209
  3. TORSEMIDE [Concomitant]
     Indication: CARDIAC DISORDER
  4. SIMVASTATIN [Concomitant]
     Indication: CARDIAC DISORDER
  5. ALLOPURINOL [Concomitant]
     Indication: CARDIAC DISORDER
  6. BELOC [Concomitant]
     Indication: CARDIAC DISORDER

REACTIONS (1)
  - CORONARY ARTERY DISEASE [None]
